FAERS Safety Report 6279075-3 (Version None)
Quarter: 2009Q3

REPORT INFORMATION
  Report Type: 
  Country: None (occurrence: None)
  Receive Date: 20090720
  Receipt Date: 20090720
  Transmission Date: 20100115
  Serious: Yes (Other)
  Sender: FDA-Public Use
  Company Number: None

PATIENT
  Age: 30 Year
  Sex: Male
  Weight: 90.7194 kg

DRUGS (6)
  1. SPIKE CAPSULES 473 MG BIOTEST [Suspect]
     Indication: DYSPNOEA
     Dosage: NOE MORE THAN 2 CAPSULES DAILY PO
     Route: 048
  2. SPIKE CAPSULES 473 MG BIOTEST [Suspect]
     Indication: PALPITATIONS
     Dosage: NOE MORE THAN 2 CAPSULES DAILY PO
     Route: 048
  3. SPIKE CAPSULES 473 MG BIOTEST [Suspect]
     Indication: UNEVALUABLE EVENT
     Dosage: NOE MORE THAN 2 CAPSULES DAILY PO
     Route: 048
  4. SLIM EXTREME 450 MG ANABOLIC XTREME [Suspect]
     Indication: DYSPNOEA
     Dosage: NOE MORE THAN  2 CAPSULES DAILY PO
     Route: 048
  5. SLIM EXTREME 450 MG ANABOLIC XTREME [Suspect]
     Indication: PALPITATIONS
     Dosage: NOE MORE THAN  2 CAPSULES DAILY PO
     Route: 048
  6. SLIM EXTREME 450 MG ANABOLIC XTREME [Suspect]
     Indication: UNEVALUABLE EVENT
     Dosage: NOE MORE THAN  2 CAPSULES DAILY PO
     Route: 048

REACTIONS (6)
  - CHEST DISCOMFORT [None]
  - DYSPEPSIA [None]
  - DYSPNOEA [None]
  - INSOMNIA [None]
  - OVERDOSE [None]
  - PALPITATIONS [None]
